FAERS Safety Report 5117979-5 (Version None)
Quarter: 2006Q3

REPORT INFORMATION
  Report Type: 
  Country: None (occurrence: None)
  Receive Date: 20060926
  Receipt Date: 20060912
  Transmission Date: 20061208
  Serious: Yes (Disabling, Other)
  Sender: FDA-Public Use
  Company Number: US200609003120

PATIENT
  Age: 63 Year
  Sex: Female

DRUGS (1)
  1. ZYPREXA [Suspect]

REACTIONS (4)
  - DIABETES MELLITUS [None]
  - TOE AMPUTATION [None]
  - WALKING AID USER [None]
  - WOUND [None]
